FAERS Safety Report 6270547-4 (Version None)
Quarter: 2009Q3

REPORT INFORMATION
  Report Type: 
  Country: None (occurrence: None)
  Receive Date: 20090716
  Receipt Date: 20090706
  Transmission Date: 20100115
  Serious: Yes (Other)
  Sender: FDA-Public Use
  Company Number: BR-PFIZER INC-2009236446

PATIENT
  Age: 26 Year

DRUGS (1)
  1. DEPO-PROVERA [Suspect]
     Indication: CONTRACEPTION
     Dosage: 150 MG, EVERY 3 MONTHS
     Dates: start: 20071001, end: 20090101

REACTIONS (4)
  - AMENORRHOEA [None]
  - HAEMORRHAGE [None]
  - HYPERSENSITIVITY [None]
  - PLATELET COUNT DECREASED [None]
